FAERS Safety Report 9436045 (Version 1)
Quarter: 2013Q3

REPORT INFORMATION
  Report Type: Spontaneous
  Country: TW (occurrence: TW)
  Receive Date: 20130801
  Receipt Date: 20130801
  Transmission Date: 20140515
  Serious: Yes (Death, Hospitalization, Other)
  Sender: FDA-Public Use
  Company Number: TW-ACTAVIS-2013-13097

PATIENT
  Age: 30 Year
  Sex: Male

DRUGS (4)
  1. CARBAMAZEPINE (UNKNOWN) [Suspect]
     Indication: MOOD ALTERED
     Dosage: 200 MG, BID
     Route: 065
  2. HALOPERIDOL [Concomitant]
     Indication: SCHIZOPHRENIA
     Dosage: 5 MG, BID
     Route: 065
  3. CLONAZEPAM [Concomitant]
     Indication: SCHIZOPHRENIA
     Dosage: 2 MG, QPM
     Route: 065
  4. ZOLPIDEM [Concomitant]
     Indication: SCHIZOPHRENIA
     Dosage: 20 MG, QPM
     Route: 065

REACTIONS (3)
  - Toxic epidermal necrolysis [Fatal]
  - Rhabdomyolysis [Fatal]
  - Multi-organ failure [Fatal]
